FAERS Safety Report 8575462-9 (Version None)
Quarter: 2012Q3

REPORT INFORMATION
  Report Type: 
  Country: None (occurrence: None)
  Receive Date: 20120807
  Receipt Date: 20120801
  Transmission Date: 20120928
  Serious: Yes (Other)
  Sender: FDA-Public Use
  Company Number: PHHY2012BR054428

PATIENT
  Sex: Female

DRUGS (1)
  1. AMLODOPINE BESYLATE AND VALSARTAN [Suspect]
     Indication: BLOOD PRESSURE ABNORMAL
     Dosage: 1 DF/DAY (160 MG VALS AND 5 MG AMLO)
     Dates: start: 20120201, end: 20120301

REACTIONS (5)
  - VISUAL IMPAIRMENT [None]
  - ERYTHEMA [None]
  - OEDEMA PERIPHERAL [None]
  - EYE SWELLING [None]
  - OCULAR HYPERAEMIA [None]
